APPROVED DRUG PRODUCT: POTASSIUM CHLORIDE
Active Ingredient: POTASSIUM CHLORIDE
Strength: 8MEQ
Dosage Form/Route: CAPSULE, EXTENDED RELEASE;ORAL
Application: A208864 | Product #001 | TE Code: AB
Applicant: ADARE PHARMACEUTICALS INC
Approved: Mar 17, 2017 | RLD: No | RS: No | Type: RX